FAERS Safety Report 5160978-8 (Version None)
Quarter: 2006Q4

REPORT INFORMATION
  Report Type: 
  Country: None (occurrence: None)
  Receive Date: 20061130
  Receipt Date: 20060616
  Transmission Date: 20070319
  Serious: No
  Sender: FDA-Public Use
  Company Number: US-BRISTOL-MYERS SQUIBB COMPANY-13415203

PATIENT
  Age: 66 Year
  Sex: Male
  Weight: 120 kg

DRUGS (1)
  1. AVALIDE [Suspect]
     Indication: HYPERTENSION
     Route: 048

REACTIONS (2)
  - DIZZINESS [None]
  - DYSGEUSIA [None]
